FAERS Safety Report 4263583-0 (Version None)
Quarter: 2004Q1

REPORT INFORMATION
  Report Type: 
  Country: None (occurrence: None)
  Receive Date: 20040105
  Receipt Date: 20031223
  Transmission Date: 20041129
  Serious: Yes (Other)
  Sender: FDA-Public Use
  Company Number: PHBS2003CA14422

PATIENT
  Sex: Female

DRUGS (1)
  1. ESTRACOMB TTS [Suspect]
     Indication: HORMONE REPLACEMENT THERAPY
     Dosage: 250/50 UG
     Route: 062
     Dates: start: 19980101

REACTIONS (2)
  - GLUCOSE TOLERANCE IMPAIRED [None]
  - WEIGHT INCREASED [None]
